FAERS Safety Report 17949469 (Version 1)
Quarter: 2020Q2

REPORT INFORMATION
  Report Type: Spontaneous
  Country: CH (occurrence: CH)
  Receive Date: 20200626
  Receipt Date: 20200626
  Transmission Date: 20200714
  Serious: Yes (Hospitalization, Other)
  Sender: FDA-Public Use
  Company Number: CH-ASTELLAS-2020US021420

PATIENT
  Age: 30 Year
  Sex: Female

DRUGS (6)
  1. TACROLIMUS. [Suspect]
     Active Substance: TACROLIMUS
     Indication: GRAFT VERSUS HOST DISEASE IN EYE
     Dosage: UNK UNK, UNKNOWN FREQ.
     Route: 065
  2. TACROLIMUS. [Suspect]
     Active Substance: TACROLIMUS
     Indication: GRAFT VERSUS HOST DISEASE IN GASTROINTESTINAL TRACT
  3. RUXOLITINIB [Concomitant]
     Active Substance: RUXOLITINIB
     Indication: GRAFT VERSUS HOST DISEASE IN GASTROINTESTINAL TRACT
  4. TACROLIMUS. [Suspect]
     Active Substance: TACROLIMUS
     Indication: GRAFT VERSUS HOST DISEASE IN LIVER
  5. RUXOLITINIB [Concomitant]
     Active Substance: RUXOLITINIB
     Indication: GRAFT VERSUS HOST DISEASE IN LIVER
  6. RUXOLITINIB [Concomitant]
     Active Substance: RUXOLITINIB
     Indication: GRAFT VERSUS HOST DISEASE IN EYE
     Dosage: UNK UNK, UNKNOWN FREQ.
     Route: 065

REACTIONS (4)
  - Lower respiratory tract infection [Recovered/Resolved]
  - Obliterative bronchiolitis [Recovered/Resolved]
  - Alveolar proteinosis [Recovered/Resolved]
  - Bronchopulmonary aspergillosis [Recovered/Resolved]
